FAERS Safety Report 24600474 (Version 2)
Quarter: 2025Q1

REPORT INFORMATION
  Report Type: Spontaneous
  Country: US (occurrence: US)
  Receive Date: 20241110
  Receipt Date: 20250115
  Transmission Date: 20250409
  Serious: No
  Sender: SANOFI AVENTIS
  Company Number: US-SA-2024SA316371

PATIENT
  Age: 69 Year
  Sex: Female

DRUGS (1)
  1. DUPIXENT [Suspect]
     Active Substance: DUPILUMAB
     Indication: Asthma
     Dosage: 300 MG, QOW
     Route: 058
     Dates: start: 20241007

REACTIONS (7)
  - Nasal congestion [Recovered/Resolved]
  - Ear pain [Recovered/Resolved]
  - Cough [Recovered/Resolved]
  - Nasopharyngitis [Unknown]
  - Oropharyngeal pain [Recovered/Resolved]
  - Injection site pain [Unknown]
  - Product preparation error [Unknown]

NARRATIVE: CASE EVENT DATE: 20241021
